FAERS Safety Report 5475080-5 (Version None)
Quarter: 2007Q4

REPORT INFORMATION
  Report Type: 
  Country: None (occurrence: None)
  Receive Date: 20071002
  Receipt Date: 20070926
  Transmission Date: 20080405
  Serious: Yes (Other)
  Sender: FDA-Public Use
  Company Number: AU-BOEHRINGER INGELHEIM PHARMACEUTICALS, INC.-2007-DE-05756GD

PATIENT

DRUGS (5)
  1. CLONIDINE [Suspect]
     Route: 064
  2. HYDRALAZINE HCL [Suspect]
     Route: 064
  3. HYDRALAZINE HCL [Suspect]
     Route: 048
  4. BETAMETHASONE [Suspect]
     Route: 064
  5. MAGNESIUM SULFATE [Suspect]
     Route: 064

REACTIONS (1)
  - PREMATURE BABY [None]
